FAERS Safety Report 7004200-6 (Version None)
Quarter: 2010Q3

REPORT INFORMATION
  Report Type: 
  Country: None (occurrence: None)
  Receive Date: 20100920
  Receipt Date: 20100217
  Transmission Date: 20110219
  Serious: No
  Sender: FDA-Public Use
  Company Number: US-WYE-H13650010

PATIENT
  Sex: Female

DRUGS (3)
  1. PRISTIQ [Suspect]
     Indication: DEPRESSION
     Route: 048
     Dates: start: 20100209
  2. PRISTIQ [Suspect]
     Indication: ANXIETY
  3. THYROID TAB [Concomitant]

REACTIONS (2)
  - CONDITION AGGRAVATED [None]
  - FATIGUE [None]
